FAERS Safety Report 6445155-2 (Version None)
Quarter: 2009Q4

REPORT INFORMATION
  Report Type: 
  Country: None (occurrence: None)
  Receive Date: 20091117
  Receipt Date: 20091117
  Transmission Date: 20100525
  Serious: Yes (Other)
  Sender: FDA-Public Use
  Company Number: None

PATIENT
  Age: 41 Year
  Sex: Female
  Weight: 74.3899 kg

DRUGS (2)
  1. SEROQUEL XR [Suspect]
     Indication: OBSESSIVE-COMPULSIVE DISORDER
     Dosage: 50 MG AT BEDTIME PO
     Route: 048
     Dates: start: 20091106, end: 20091113
  2. SEROQUEL XR [Suspect]

REACTIONS (3)
  - DYSKINESIA [None]
  - FORMICATION [None]
  - MUSCLE TWITCHING [None]
